FAERS Safety Report 24158539 (Version 1)
Quarter: 2024Q3

REPORT INFORMATION
  Report Type: Spontaneous
  Country: US (occurrence: US)
  Receive Date: 20240731
  Receipt Date: 20240731
  Transmission Date: 20241016
  Serious: No
  Sender: INSUD PHARMA
  Company Number: US-INSUD PHARMA-2407US05794

PATIENT

DRUGS (1)
  1. TYBLUME [Suspect]
     Active Substance: ETHINYL ESTRADIOL\LEVONORGESTREL
     Indication: Menstrual cycle management
     Dosage: UNK
     Route: 048
     Dates: start: 20240712

REACTIONS (2)
  - Menstruation delayed [Not Recovered/Not Resolved]
  - Product use in unapproved indication [Unknown]

NARRATIVE: CASE EVENT DATE: 20240101
